FAERS Safety Report 5621004-7 (Version None)
Quarter: 2008Q1

REPORT INFORMATION
  Report Type: 
  Country: None (occurrence: None)
  Receive Date: 20080208
  Receipt Date: 20080206
  Transmission Date: 20080703
  Serious: Yes (Hospitalization)
  Sender: FDA-Public Use
  Company Number: ZA-BRISTOL-MYERS SQUIBB COMPANY-14019418

PATIENT
  Age: 42 Year
  Sex: Female

DRUGS (2)
  1. DASATINIB [Suspect]
     Indication: CHRONIC MYELOID LEUKAEMIA
     Route: 048
     Dates: start: 20070903, end: 20071219
  2. WARFARIN SODIUM [Concomitant]
     Dates: start: 20071106

REACTIONS (2)
  - PLEURAL EFFUSION [None]
  - RIGHT VENTRICULAR FAILURE [None]
